FAERS Safety Report 13840242 (Version 1)
Quarter: 2017Q3

REPORT INFORMATION
  Report Type: Report from Study
  Country: US (occurrence: US)
  Receive Date: 20170807
  Receipt Date: 20170807
  Transmission Date: 20171127
  Serious: Yes (Hospitalization)
  Sender: FDA-Public Use
  Company Number: US-GILEAD-2017-0286558

PATIENT
  Age: 69 Year
  Sex: Female

DRUGS (20)
  1. METOPROLOL. [Concomitant]
     Active Substance: METOPROLOL
  2. AMBRISENTAN [Suspect]
     Active Substance: AMBRISENTAN
     Indication: PULMONARY ARTERIAL HYPERTENSION
     Dosage: 10 MG, QD
     Route: 065
     Dates: start: 20131030
  3. ATORVASTATIN [Concomitant]
     Active Substance: ATORVASTATIN
  4. DULOXETINE. [Concomitant]
     Active Substance: DULOXETINE
  5. MIRTAZAPINE. [Concomitant]
     Active Substance: MIRTAZAPINE
  6. ALBUTEROL                          /00139501/ [Concomitant]
     Active Substance: ALBUTEROL
  7. C-VIT [Concomitant]
  8. CETIRIZINE [Concomitant]
     Active Substance: CETIRIZINE HYDROCHLORIDE
  9. ESOMEPRAZOLE [Concomitant]
     Active Substance: ESOMEPRAZOLE
  10. FUROSEMIDE. [Concomitant]
     Active Substance: FUROSEMIDE
  11. CYCLOBENZAPRINE. [Concomitant]
     Active Substance: CYCLOBENZAPRINE
  12. ADCIRCA [Concomitant]
     Active Substance: TADALAFIL
     Indication: PULMONARY ARTERIAL HYPERTENSION
     Route: 065
     Dates: start: 20140321
  13. AMBIEN [Concomitant]
     Active Substance: ZOLPIDEM TARTRATE
  14. APAP/CODEINE [Concomitant]
     Active Substance: ACETAMINOPHEN\CODEINE PHOSPHATE
  15. WARFARIN [Concomitant]
     Active Substance: WARFARIN
  16. METOLAZONE. [Concomitant]
     Active Substance: METOLAZONE
  17. SERTRALINE [Concomitant]
     Active Substance: SERTRALINE HYDROCHLORIDE
  18. GABAPENTIN. [Concomitant]
     Active Substance: GABAPENTIN
  19. ADVAIR HFA [Concomitant]
     Active Substance: FLUTICASONE PROPIONATE\SALMETEROL XINAFOATE
  20. KCL [Concomitant]
     Active Substance: POTASSIUM CHLORIDE

REACTIONS (1)
  - Fall [Not Recovered/Not Resolved]

NARRATIVE: CASE EVENT DATE: 20170801
